FAERS Safety Report 10136887 (Version 1)
Quarter: 2014Q2

REPORT INFORMATION
  Report Type: Spontaneous
  Country: FR (occurrence: None)
  Receive Date: 20140425
  Receipt Date: 20140425
  Transmission Date: 20141212
  Serious: Yes (Hospitalization)
  Sender: FDA-Public Use
  Company Number: 2298609

PATIENT
  Age: 53 Year
  Sex: Female

DRUGS (2)
  1. PACLITAXEL [Suspect]
     Indication: NON-SMALL CELL LUNG CANCER
     Dates: start: 20140312, end: 20140312
  2. CARBOPLATIN [Suspect]
     Indication: NON-SMALL CELL LUNG CANCER
     Route: 042
     Dates: start: 20140312, end: 20140312

REACTIONS (8)
  - Cyanosis [None]
  - Back pain [None]
  - Abdominal pain [None]
  - Erythema [None]
  - Nausea [None]
  - Diarrhoea [None]
  - Blood pressure decreased [None]
  - Body temperature decreased [None]
